FAERS Safety Report 5369073-6 (Version None)
Quarter: 2007Q2

REPORT INFORMATION
  Report Type: 
  Country: None (occurrence: None)
  Receive Date: 20070625
  Receipt Date: 20070122
  Transmission Date: 20071010
  Serious: No
  Sender: FDA-Public Use
  Company Number: US-ASTRAZENECA-2007UW01317

PATIENT
  Age: 40 Year
  Sex: Female
  Weight: 97.5 kg

DRUGS (3)
  1. CRESTOR [Suspect]
     Route: 048
     Dates: start: 20061001
  2. CRESTOR [Suspect]
     Route: 048
     Dates: start: 20070115
  3. LISINOPRIL [Concomitant]
     Route: 048

REACTIONS (2)
  - GOITRE [None]
  - ODYNOPHAGIA [None]
